FAERS Safety Report 24584115 (Version 1)
Quarter: 2024Q4

REPORT INFORMATION
  Report Type: Spontaneous
  Country: US (occurrence: US)
  Receive Date: 20241106
  Receipt Date: 20241106
  Transmission Date: 20250114
  Serious: Yes (Hospitalization, Other)
  Sender: MERCK
  Company Number: US-009507513-2410USA013657

PATIENT
  Age: 57 Year
  Sex: Female

DRUGS (1)
  1. KEYTRUDA [Suspect]
     Active Substance: PEMBROLIZUMAB
     Indication: Vaginal cancer
     Dosage: UNK UNK, Q3W

REACTIONS (6)
  - Cytokine release syndrome [Unknown]
  - Immune-mediated encephalitis [Unknown]
  - Encephalitis autoimmune [Unknown]
  - Immune-mediated myasthenia gravis [Unknown]
  - Immune-mediated myocarditis [Unknown]
  - Product use in unapproved indication [Unknown]
